FAERS Safety Report 10399966 (Version 1)
Quarter: 2014Q1

REPORT INFORMATION
  Report Type: Spontaneous
  Country: US (occurrence: None)
  Receive Date: 20130815
  Receipt Date: 20130815
  Transmission Date: 20141002
  Serious: Yes (Other)
  Sender: FDA-Public Use
  Company Number: ADR-2012-01750

PATIENT
  Age: 59 Year
  Sex: Female

DRUGS (4)
  1. BACLOFEN INTRACTABLE (BACLOFEN INJECTION) [Suspect]
     Indication: SPINAL PAIN
  2. BUPIVACAINE [Concomitant]
  3. MORPHINE [Concomitant]
  4. CLONIDINE INTRATHECAL [Concomitant]

REACTIONS (1)
  - Dyspepsia [None]
